FAERS Safety Report 5390731-1 (Version None)
Quarter: 2007Q3

REPORT INFORMATION
  Report Type: 
  Country: None (occurrence: None)
  Receive Date: 20070716
  Receipt Date: 20051209
  Transmission Date: 20080115
  Serious: Yes (Hospitalization)
  Sender: FDA-Public Use
  Company Number: MPS1-10462

PATIENT
  Age: 29 Month
  Sex: Female
  Weight: 11 kg

DRUGS (1)
  1. ALDURAZYME [Suspect]
     Indication: MUCOPOLYSACCHARIDOSIS I
     Dosage: 100 UG/KG;IV
     Route: 042
     Dates: start: 20050520

REACTIONS (9)
  - COUGH [None]
  - MOOD ALTERED [None]
  - OTITIS MEDIA [None]
  - OTORRHOEA [None]
  - PHARYNGEAL ERYTHEMA [None]
  - PHARYNGITIS [None]
  - RESPIRATORY SYNCYTIAL VIRUS INFECTION [None]
  - TACHYPNOEA [None]
  - WHEEZING [None]
